FAERS Safety Report 8577007-6 (Version None)
Quarter: 2012Q3

REPORT INFORMATION
  Report Type: 
  Country: None (occurrence: None)
  Receive Date: 20120807
  Receipt Date: 20120518
  Transmission Date: 20120928
  Serious: No
  Sender: FDA-Public Use
  Company Number: US-BAUSCH-2012BL003238

PATIENT
  Age: 75 Year
  Sex: Female

DRUGS (2)
  1. DORZOLAMIDE HCL AND TIMOLOL MALEATE [Suspect]
     Indication: OPEN ANGLE GLAUCOMA
     Route: 047
  2. TRAVATAN [Concomitant]

REACTIONS (3)
  - OCULAR HYPERAEMIA [None]
  - ERYTHEMA OF EYELID [None]
  - INSTILLATION SITE PAIN [None]
